FAERS Safety Report 16881132 (Version 1)
Quarter: 2019Q4

REPORT INFORMATION
  Report Type: Spontaneous
  Country: JP (occurrence: JP)
  Receive Date: 20191003
  Receipt Date: 20191003
  Transmission Date: 20200122
  Serious: Yes (Death, Hospitalization, Other)
  Sender: FDA-Public Use
  Company Number: JP-ASTRAZENECA-2019SF41002

PATIENT
  Age: 29177 Day
  Sex: Male
  Weight: 67 kg

DRUGS (3)
  1. NEXIUM [Suspect]
     Active Substance: ESOMEPRAZOLE MAGNESIUM
     Indication: GASTROOESOPHAGEAL REFLUX DISEASE
     Route: 048
     Dates: start: 20140711
  2. APIXABAN [Concomitant]
     Active Substance: APIXABAN
     Dates: start: 20180701
  3. APIXABAN [Concomitant]
     Active Substance: APIXABAN
     Dates: start: 20180702

REACTIONS (5)
  - Pneumonia [Recovering/Resolving]
  - Cardiac failure [Unknown]
  - Myelofibrosis [Unknown]
  - Cardiac failure chronic [Fatal]
  - Hyponatraemia [Recovering/Resolving]

NARRATIVE: CASE EVENT DATE: 20171125
